FAERS Safety Report 18255609 (Version 1)
Quarter: 2020Q3

REPORT INFORMATION
  Report Type: Spontaneous
  Country: US (occurrence: US)
  Receive Date: 20200910
  Receipt Date: 20200910
  Transmission Date: 20201103
  Serious: No
  Sender: FDA-Public Use
  Company Number: US-EUSA PHARMA (NETHERLANDS) B.V.-2020US000194

PATIENT
  Sex: Female

DRUGS (4)
  1. SYLVANT [Suspect]
     Active Substance: SILTUXIMAB
     Dosage: UNK, (50% REDUCED DOSE)
     Route: 065
     Dates: start: 20200817
  2. SYLVANT [Suspect]
     Active Substance: SILTUXIMAB
     Indication: CASTLEMAN^S DISEASE
     Dosage: UNK, (CYCLE 1)
     Route: 065
  3. SYLVANT [Suspect]
     Active Substance: SILTUXIMAB
     Dosage: UNK, (CYCLE 2)
     Route: 065
  4. SYLVANT [Suspect]
     Active Substance: SILTUXIMAB
     Dosage: UNK, (CYCLE 3)
     Route: 065

REACTIONS (3)
  - Therapy change [Unknown]
  - Product dose omission issue [Unknown]
  - Malaise [Unknown]

NARRATIVE: CASE EVENT DATE: 202008
